FAERS Safety Report 18969803 (Version 1)
Quarter: 2021Q1

REPORT INFORMATION
  Report Type: Spontaneous
  Country: US (occurrence: US)
  Receive Date: 20210304
  Receipt Date: 20210304
  Transmission Date: 20210420
  Serious: Yes (Life-Threatening)
  Sender: FDA-Public Use
  Company Number: US-PFIZER INC-2021207066

PATIENT
  Age: 50 Year
  Sex: Female

DRUGS (7)
  1. METOCLOPRAMIDE HCL [Interacting]
     Active Substance: METOCLOPRAMIDE HYDROCHLORIDE
     Indication: NAUSEA
     Dosage: 10 MG
     Route: 042
  2. HEROIN [Concomitant]
     Active Substance: DIAMORPHINE
     Dosage: UNK
  3. METHADONE [Interacting]
     Active Substance: METHADONE HYDROCHLORIDE
     Dosage: UNK
  4. METOCLOPRAMIDE HCL [Interacting]
     Active Substance: METOCLOPRAMIDE HYDROCHLORIDE
     Indication: VOMITING
  5. CEFTRIAXONE. [Interacting]
     Active Substance: CEFTRIAXONE
     Indication: PNEUMONIA ASPIRATION
     Dosage: UNK
     Route: 042
  6. COCAINE [Concomitant]
     Active Substance: COCAINE
     Dosage: UNK
  7. METRONIDAZOLE. [Suspect]
     Active Substance: METRONIDAZOLE
     Indication: PNEUMONIA ASPIRATION
     Dosage: UNK
     Route: 042

REACTIONS (2)
  - Torsade de pointes [Recovered/Resolved]
  - Drug interaction [Recovered/Resolved]
